FAERS Safety Report 5243368-9 (Version None)
Quarter: 2007Q1

REPORT INFORMATION
  Report Type: 
  Country: None (occurrence: None)
  Receive Date: 20061201
  Receipt Date: 20060818
  Transmission Date: 20070707
  Serious: No
  Sender: FDA-Public Use
  Company Number: 2006PV019740

PATIENT
  Age: 56 Year
  Sex: Male
  Weight: 77.1115 kg

DRUGS (4)
  1. BYETTA [Suspect]
     Indication: DIABETES MELLITUS NON-INSULIN-DEPENDENT
     Dosage: 5 MCG; BID; SC
     Route: 058
     Dates: start: 20060701, end: 20060818
  2. PRECOSE [Concomitant]
  3. AVANDIA [Concomitant]
  4. ENALAPRIL MALEATE [Concomitant]

REACTIONS (11)
  - BACK PAIN [None]
  - DIZZINESS [None]
  - DYSGEUSIA [None]
  - FATIGUE [None]
  - HEART RATE INCREASED [None]
  - HICCUPS [None]
  - HYPOTENSION [None]
  - NAUSEA [None]
  - NECK PAIN [None]
  - VOMITING [None]
  - WEIGHT DECREASED [None]
